FAERS Safety Report 18726930 (Version 1)
Quarter: 2021Q1

REPORT INFORMATION
  Report Type: Spontaneous
  Country: IT (occurrence: IT)
  Receive Date: 20210112
  Receipt Date: 20210112
  Transmission Date: 20210419
  Serious: Yes (Hospitalization)
  Sender: FDA-Public Use
  Company Number: IT-009507513-2101ITA001567

PATIENT
  Age: 58 Year
  Sex: Female

DRUGS (1)
  1. FOSAVANCE [Suspect]
     Active Substance: ALENDRONATE SODIUM\CHOLECALCIFEROL
     Indication: OSTEOPOROSIS
     Dosage: 6 DOSAGE FORM, ONCE (TOTAL); 1 TABLET/DAY FOR 6 DAYS (MEDICATION ERROR; 2800 IU TABLETS)
     Route: 048
     Dates: start: 20201214, end: 20201219

REACTIONS (2)
  - Medication error [Recovering/Resolving]
  - Paraesthesia [Recovering/Resolving]

NARRATIVE: CASE EVENT DATE: 20201219
